FAERS Safety Report 6758414-0 (Version None)
Quarter: 2010Q2

REPORT INFORMATION
  Report Type: 
  Country: None (occurrence: None)
  Receive Date: 20100607
  Receipt Date: 20100525
  Transmission Date: 20101027
  Serious: Yes (Hospitalization)
  Sender: FDA-Public Use
  Company Number: FR-ROCHE-705973

PATIENT
  Sex: Female
  Weight: 60 kg

DRUGS (9)
  1. AVASTIN [Suspect]
     Indication: ADENOCARCINOMA
     Route: 041
     Dates: start: 20090219, end: 20090514
  2. CAMPTOSAR [Suspect]
     Indication: ADENOCARCINOMA
     Route: 042
     Dates: start: 20090219, end: 20090527
  3. FLUOROURACIL [Suspect]
     Indication: ADENOCARCINOMA
     Route: 042
     Dates: start: 20090219
  4. FLUOROURACIL [Suspect]
     Route: 042
     Dates: start: 20090514, end: 20090527
  5. CALCIUM FOLINATE [Suspect]
     Indication: ADENOCARCINOMA
     Route: 042
     Dates: start: 20090219
  6. CALCIUM FOLINATE [Suspect]
     Route: 042
     Dates: start: 20090514, end: 20090527
  7. SOLU-MEDROL [Suspect]
     Indication: VOMITING
     Route: 042
     Dates: start: 20090219, end: 20090527
  8. ZOPHREN [Suspect]
     Indication: VOMITING
     Route: 048
     Dates: start: 20090219, end: 20090527
  9. PROCTOLOG [Concomitant]

REACTIONS (1)
  - ERYTHROSIS [None]
